FAERS Safety Report 26074554 (Version 1)
Quarter: 2025Q4

REPORT INFORMATION
  Report Type: Spontaneous
  Country: EU (occurrence: EU)
  Receive Date: 20251121
  Receipt Date: 20251121
  Transmission Date: 20260118
  Serious: Yes (Death, Other)
  Sender: MYLAN
  Company Number: EU-MYLANLABS-2025M1098342

PATIENT
  Age: 84 Year
  Sex: Female

DRUGS (20)
  1. METHOTREXATE [Suspect]
     Active Substance: METHOTREXATE
     Indication: Intestinal T-cell lymphoma recurrent
     Dosage: 3 GRAM PER SQUARE METRE (HIGH DOSE 3 G/M2 RECEIVED ON DAY 1 AND DAY 15)
  2. METHOTREXATE [Suspect]
     Active Substance: METHOTREXATE
     Dosage: 3 GRAM PER SQUARE METRE (HIGH DOSE 3 G/M2 RECEIVED ON DAY 1 AND DAY 15)
     Route: 042
  3. METHOTREXATE [Suspect]
     Active Substance: METHOTREXATE
     Dosage: 3 GRAM PER SQUARE METRE (HIGH DOSE 3 G/M2 RECEIVED ON DAY 1 AND DAY 15)
     Route: 042
  4. METHOTREXATE [Suspect]
     Active Substance: METHOTREXATE
     Dosage: 3 GRAM PER SQUARE METRE (HIGH DOSE 3 G/M2 RECEIVED ON DAY 1 AND DAY 15)
  5. METHOTREXATE [Suspect]
     Active Substance: METHOTREXATE
     Indication: Intestinal T-cell lymphoma recurrent
     Dosage: UNK, QW
  6. METHOTREXATE [Suspect]
     Active Substance: METHOTREXATE
     Dosage: UNK, QW
  7. METHOTREXATE [Suspect]
     Active Substance: METHOTREXATE
     Dosage: UNK, QW
  8. METHOTREXATE [Suspect]
     Active Substance: METHOTREXATE
     Dosage: UNK, QW
  9. PROCARBAZINE [Suspect]
     Active Substance: PROCARBAZINE
     Indication: Intestinal T-cell lymphoma recurrent
     Dosage: UNK
  10. PROCARBAZINE [Suspect]
     Active Substance: PROCARBAZINE
     Dosage: UNK
     Route: 065
  11. PROCARBAZINE [Suspect]
     Active Substance: PROCARBAZINE
     Dosage: UNK
     Route: 065
  12. PROCARBAZINE [Suspect]
     Active Substance: PROCARBAZINE
     Dosage: UNK
  13. VINCRISTINE [Suspect]
     Active Substance: VINCRISTINE
     Indication: Intestinal T-cell lymphoma recurrent
     Dosage: UNK
  14. VINCRISTINE [Suspect]
     Active Substance: VINCRISTINE
     Dosage: UNK
     Route: 065
  15. VINCRISTINE [Suspect]
     Active Substance: VINCRISTINE
     Dosage: UNK
     Route: 065
  16. VINCRISTINE [Suspect]
     Active Substance: VINCRISTINE
     Dosage: UNK
  17. TEMOZOLOMIDE [Concomitant]
     Active Substance: TEMOZOLOMIDE
     Indication: Intestinal T-cell lymphoma recurrent
     Dosage: 150 MILLIGRAM/SQ. METER (EVERY 4 WEEK)
  18. TEMOZOLOMIDE [Concomitant]
     Active Substance: TEMOZOLOMIDE
     Dosage: 150 MILLIGRAM/SQ. METER (EVERY 4 WEEK)
     Route: 048
  19. TEMOZOLOMIDE [Concomitant]
     Active Substance: TEMOZOLOMIDE
     Dosage: 150 MILLIGRAM/SQ. METER (EVERY 4 WEEK)
     Route: 048
  20. TEMOZOLOMIDE [Concomitant]
     Active Substance: TEMOZOLOMIDE
     Dosage: 150 MILLIGRAM/SQ. METER (EVERY 4 WEEK)

REACTIONS (5)
  - Drug ineffective [Fatal]
  - Disease progression [Fatal]
  - Corneal toxicity [Unknown]
  - Eye pain [Unknown]
  - Erythema [Unknown]
